FAERS Safety Report 23639864 (Version 1)
Quarter: 2024Q1

REPORT INFORMATION
  Report Type: Report from Study
  Country: CA (occurrence: CA)
  Receive Date: 20240316
  Receipt Date: 20240316
  Transmission Date: 20240410
  Serious: Yes (Other)
  Sender: FDA-Public Use
  Company Number: CA-JNJFOC-20240144900

PATIENT
  Age: 59 Year
  Sex: Male

DRUGS (1)
  1. TREMFYA [Suspect]
     Active Substance: GUSELKUMAB
     Indication: Psoriasis
     Dosage: LAST TREATMENT WAS RECEIVED A WEEK AGO 09-JAN-2024
     Route: 065

REACTIONS (3)
  - Cellulitis [Unknown]
  - Pruritus [Unknown]
  - Product contamination [Unknown]

NARRATIVE: CASE EVENT DATE: 20240101
